FAERS Safety Report 7171130-9 (Version None)
Quarter: 2010Q4

REPORT INFORMATION
  Report Type: 
  Country: None (occurrence: None)
  Receive Date: 20101217
  Receipt Date: 20101203
  Transmission Date: 20110411
  Serious: Yes (Other)
  Sender: FDA-Public Use
  Company Number: DE-GENENTECH-309944

PATIENT
  Sex: Male

DRUGS (2)
  1. MABTHERA [Suspect]
     Indication: LYMPHOPLASMACYTOID LYMPHOMA/IMMUNOCYTOMA
     Dosage: 375 MG/M2, UNK
     Route: 042
     Dates: start: 20100921, end: 20101116
  2. BENDAMUSTINE [Concomitant]
     Indication: LYMPHOPLASMACYTOID LYMPHOMA/IMMUNOCYTOMA
     Dosage: 90 MG/M2, UNK
     Route: 042
     Dates: start: 20100922, end: 20101118

REACTIONS (2)
  - BRONCHIAL OBSTRUCTION [None]
  - RASH [None]
